FAERS Safety Report 10703010 (Version 1)
Quarter: 2015Q1

REPORT INFORMATION
  Report Type: Spontaneous
  Country: US (occurrence: US)
  Receive Date: 20150111
  Receipt Date: 20150111
  Transmission Date: 20150721
  Serious: No
  Sender: FDA-Public Use
  Company Number: US-BRISTOL-MYERS SQUIBB COMPANY-BMS-2014-001282

PATIENT
  Age: 66 Year
  Sex: Male

DRUGS (1)
  1. SPRYCEL [Suspect]
     Active Substance: DASATINIB
     Indication: CHRONIC MYELOID LEUKAEMIA
     Dosage: 100 MG, QD
     Route: 048
     Dates: start: 20141206

REACTIONS (7)
  - Pain [Recovering/Resolving]
  - Diarrhoea [Recovering/Resolving]
  - Visual impairment [Recovering/Resolving]
  - Photophobia [Recovering/Resolving]
  - Fatigue [Recovering/Resolving]
  - Migraine [Recovering/Resolving]
  - Hot flush [Recovering/Resolving]

NARRATIVE: CASE EVENT DATE: 20141206
